FAERS Safety Report 9709945 (Version 1)
Quarter: 2013Q4

REPORT INFORMATION
  Report Type: Spontaneous
  Country: ES (occurrence: ES)
  Receive Date: 20131126
  Receipt Date: 20131126
  Transmission Date: 20140711
  Serious: Yes (Other)
  Sender: FDA-Public Use
  Company Number: ES-ASTRAZENECA-2013SE84733

PATIENT
  Age: 80 Year
  Sex: Male

DRUGS (1)
  1. BRILIQUE [Suspect]
     Indication: MYOCARDIAL ISCHAEMIA
     Dosage: DAILY DOSAGE 180 MG
     Route: 048
     Dates: start: 20120724, end: 20120820

REACTIONS (1)
  - Hypersensitivity vasculitis [Recovered/Resolved]
